FAERS Safety Report 4540650-5 (Version None)
Quarter: 2004Q4

REPORT INFORMATION
  Report Type: 
  Country: None (occurrence: None)
  Receive Date: 20041222
  Receipt Date: 20041206
  Transmission Date: 20050328
  Serious: Yes (Other)
  Sender: FDA-Public Use
  Company Number: 2004EU002164

PATIENT
  Age: 54 Year
  Sex: Male

DRUGS (4)
  1. PROGRAF [Suspect]
     Indication: LIVER TRANSPLANT
     Dosage: 8.00 MG
  2. AZATHIOPRINE [Concomitant]
  3. PREDNISOLONE [Concomitant]
  4. GANCICLOVIR SODIUM [Concomitant]

REACTIONS (7)
  - ARTHRALGIA [None]
  - DIARRHOEA [None]
  - HAEMOLYTIC ANAEMIA [None]
  - LYMPHADENOPATHY [None]
  - PANCYTOPENIA [None]
  - POST PROCEDURAL COMPLICATION [None]
  - RASH [None]
